FAERS Safety Report 13143959 (Version 1)
Quarter: 2017Q1

REPORT INFORMATION
  Report Type: Spontaneous
  Country: DE (occurrence: DE)
  Receive Date: 20170124
  Receipt Date: 20170124
  Transmission Date: 20170428
  Serious: Yes (Hospitalization)
  Sender: FDA-Public Use
  Company Number: DE-MALLINCKRODT-T201700128

PATIENT
  Sex: Female

DRUGS (2)
  1. ULTRA-TECHNEKOW FM [Suspect]
     Active Substance: TECHNETIUM TC-99M SODIUM PERTECHNETATE
     Indication: RADIOISOTOPE SCAN
     Dosage: UNKNOWN
     Route: 065
  2. L-THYROXIN [Suspect]
     Active Substance: LEVOTHYROXINE SODIUM
     Indication: PRODUCT USED FOR UNKNOWN INDICATION
     Route: 065

REACTIONS (14)
  - Limb discomfort [Unknown]
  - Blood pressure increased [Unknown]
  - Blood pressure increased [Unknown]
  - Heart rate increased [Unknown]
  - Paraesthesia [Unknown]
  - Panic attack [Unknown]
  - Palpitations [Unknown]
  - Fatigue [Unknown]
  - Feeling cold [Unknown]
  - Dyspnoea [Unknown]
  - Headache [Unknown]
  - Tremor [Unknown]
  - Muscle contracture [Unknown]
  - Respiratory distress [Unknown]

NARRATIVE: CASE EVENT DATE: 20161129
